FAERS Safety Report 4263206-0 (Version None)
Quarter: 2004Q1

REPORT INFORMATION
  Report Type: 
  Country: None (occurrence: None)
  Receive Date: 20040105
  Receipt Date: 20031121
  Transmission Date: 20041129
  Serious: Yes (Other)
  Sender: FDA-Public Use
  Company Number: GB-BRISTOL-MYERS SQUIBB COMPANY-12440632

PATIENT
  Age: 64 Year
  Sex: Female

DRUGS (3)
  1. CYCLOPHOSPHAMIDE [Suspect]
     Indication: OVARIAN CANCER
     Route: 042
  2. CISPLATIN [Suspect]
     Indication: OVARIAN CANCER
     Route: 042
  3. DOXORUBICIN HCL [Suspect]
     Indication: OVARIAN CANCER
     Route: 042

REACTIONS (4)
  - CEREBRAL ATROPHY [None]
  - DYSPHAGIA [None]
  - GRAND MAL CONVULSION [None]
  - HEMIPARESIS [None]
